FAERS Safety Report 18554132 (Version 1)
Quarter: 2020Q4

REPORT INFORMATION
  Report Type: Spontaneous
  Country: ES (occurrence: ES)
  Receive Date: 20201127
  Receipt Date: 20201127
  Transmission Date: 20210114
  Serious: Yes (Hospitalization, Other)
  Sender: FDA-Public Use
  Company Number: ES-ASTRAZENECA-2020SF53690

PATIENT
  Age: 69 Year
  Sex: Female

DRUGS (4)
  1. PALBOCICLIB [Suspect]
     Active Substance: PALBOCICLIB
     Indication: INVASIVE DUCTAL BREAST CARCINOMA
     Dosage: 125 MG, CYCLIC (D1-21 EVERY 28 DAYS)125.0MG EVERY CYCLE
     Route: 065
     Dates: start: 20180716, end: 20200915
  2. FULVESTRANT. [Suspect]
     Active Substance: FULVESTRANT
     Indication: BREAST CANCER METASTATIC
     Dosage: 500 MG, CYCLIC (C1D1-15-28 AND EVERY 28 DAYS)500.0MG EVERY CYCLE
     Route: 030
     Dates: start: 20180716, end: 20200915
  3. FULVESTRANT. [Suspect]
     Active Substance: FULVESTRANT
     Indication: INVASIVE DUCTAL BREAST CARCINOMA
     Dosage: 500 MG, CYCLIC (C1D1-15-28 AND EVERY 28 DAYS)500.0MG EVERY CYCLE
     Route: 030
     Dates: start: 20180716, end: 20200915
  4. PALBOCICLIB [Suspect]
     Active Substance: PALBOCICLIB
     Indication: BREAST CANCER METASTATIC
     Dosage: 125 MG, CYCLIC (D1-21 EVERY 28 DAYS)125.0MG EVERY CYCLE
     Route: 065
     Dates: start: 20180716, end: 20200915

REACTIONS (6)
  - Neoplasm progression [Unknown]
  - Anaemia [Unknown]
  - Musculoskeletal pain [Unknown]
  - Spinal compression fracture [Unknown]
  - Asthenia [Unknown]
  - Neutropenia [Unknown]

NARRATIVE: CASE EVENT DATE: 2019
